FAERS Safety Report 9866491 (Version 3)
Quarter: 2014Q2

REPORT INFORMATION
  Report Type: Report from Study
  Country: US (occurrence: US)
  Receive Date: 20140204
  Receipt Date: 20140501
  Transmission Date: 20141212
  Serious: Yes (Hospitalization, Other)
  Sender: FDA-Public Use
  Company Number: US-BIOGENIDEC-2014BI010512

PATIENT
  Age: 59 Year
  Sex: Female

DRUGS (6)
  1. TYSABRI [Suspect]
     Indication: MULTIPLE SCLEROSIS
     Route: 042
     Dates: start: 20061101
  2. TYSABRI [Suspect]
     Indication: MULTIPLE SCLEROSIS
     Dates: end: 20140414
  3. AMPYRA [Concomitant]
     Indication: GAIT DISTURBANCE
     Route: 048
  4. NUVIGIL [Concomitant]
  5. BACLOFEN [Concomitant]
  6. CALCIUM [Concomitant]

REACTIONS (16)
  - Multiple sclerosis relapse [Recovered/Resolved]
  - Convulsion [Recovered/Resolved]
  - Infection [Recovered/Resolved]
  - Dysphagia [Recovered/Resolved]
  - Cardiac arrest [Recovered/Resolved]
  - Apparent death [Unknown]
  - Lethargy [Recovered/Resolved]
  - Dehydration [Recovered/Resolved]
  - Unresponsive to stimuli [Recovered/Resolved]
  - Blood pressure decreased [Recovered/Resolved]
  - Haemorrhage [Recovered/Resolved]
  - Respiratory failure [Recovered/Resolved]
  - Moderate mental retardation [Recovered/Resolved]
  - Mobility decreased [Recovered/Resolved]
  - Asthenia [Not Recovered/Not Resolved]
  - Decreased immune responsiveness [Recovered/Resolved]
